FAERS Safety Report 7983784-5 (Version None)
Quarter: 2011Q4

REPORT INFORMATION
  Report Type: 
  Country: None (occurrence: None)
  Receive Date: 20111215
  Receipt Date: 20111107
  Transmission Date: 20120403
  Serious: Yes (Other)
  Sender: FDA-Public Use
  Company Number: PHHY2011JP108354

PATIENT
  Age: 70 Year
  Sex: Female

DRUGS (1)
  1. VOLTAREN [Suspect]
     Indication: PAIN IN EXTREMITY
     Dosage: 25 MG, UNK
     Route: 054

REACTIONS (2)
  - MOUTH INJURY [None]
  - FALL [None]
